FAERS Safety Report 8493326-6 (Version None)
Quarter: 2012Q3

REPORT INFORMATION
  Report Type: 
  Country: None (occurrence: None)
  Receive Date: 20120706
  Receipt Date: 20120703
  Transmission Date: 20120928
  Serious: Yes (Other)
  Sender: FDA-Public Use
  Company Number: US-BAYER-2012-058424

PATIENT
  Age: 46 Year
  Sex: Female
  Weight: 111.5 kg

DRUGS (7)
  1. TOPAMAX [Concomitant]
     Dosage: 100
  2. LAMICTAL [Concomitant]
  3. AVELOX [Suspect]
     Indication: SINUSITIS BACTERIAL
     Dosage: 400 MG, QD
     Route: 048
     Dates: start: 20120606, end: 20120610
  4. TOPAMAX [Concomitant]
     Dosage: 100
  5. LASIX [Concomitant]
     Dosage: 40
  6. RISPERDAL [Concomitant]
     Dosage: 1,5 + 1
  7. SINGULAIR [Concomitant]

REACTIONS (6)
  - EMOTIONAL DISTRESS [None]
  - OEDEMA PERIPHERAL [None]
  - MOOD ALTERED [None]
  - SUICIDAL IDEATION [None]
  - PAIN IN EXTREMITY [None]
  - DEPRESSION [None]
